FAERS Safety Report 4940037-7 (Version None)
Quarter: 2006Q1

REPORT INFORMATION
  Report Type: 
  Country: None (occurrence: None)
  Receive Date: 20060310
  Receipt Date: 20060228
  Transmission Date: 20060701
  Serious: Yes (Hospitalization)
  Sender: FDA-Public Use
  Company Number: US-BRISTOL-MYERS SQUIBB COMPANY-13298179

PATIENT
  Age: 56 Year
  Sex: Female

DRUGS (3)
  1. BLINDED: CETUXIMAB [Suspect]
     Indication: SQUAMOUS CELL CARCINOMA
     Dosage: INITIATED AT 200 ML/M2 ON 27-DEC-2000.  FOLLOWED BY MAINTENANCE DOSES OF 125 ML/M2 IV WEEKLY.
     Route: 042
     Dates: start: 20010103
  2. CISPLATIN [Suspect]
     Indication: SQUAMOUS CELL CARCINOMA
     Dosage: INITIATED ON 27-DEC-2000.
     Route: 042
     Dates: start: 20010124
  3. BLINDED: PLACEBO [Suspect]
     Indication: SQUAMOUS CELL CARCINOMA
     Route: 042
     Dates: start: 20010103

REACTIONS (1)
  - DEHYDRATION [None]
